FAERS Safety Report 7610688-X (Version None)
Quarter: 2011Q3

REPORT INFORMATION
  Report Type: 
  Country: None (occurrence: None)
  Receive Date: 20110715
  Receipt Date: 20110713
  Transmission Date: 20111222
  Serious: Yes (Hospitalization, Other)
  Sender: FDA-Public Use
  Company Number: US-PFIZER INC-2011159188

PATIENT
  Age: 52 Year
  Sex: Female
  Weight: 61.224 kg

DRUGS (1)
  1. LYRICA [Suspect]
     Indication: PAIN
     Dosage: UNKNOWN DOSE FOUR TIMES A DAY
     Route: 048
     Dates: end: 20110705

REACTIONS (5)
  - SLEEP DISORDER [None]
  - MEMORY IMPAIRMENT [None]
  - GRAND MAL CONVULSION [None]
  - FOREIGN BODY [None]
  - PARAESTHESIA [None]
